FAERS Safety Report 5138679-1 (Version None)
Quarter: 2006Q4

REPORT INFORMATION
  Report Type: 
  Country: None (occurrence: None)
  Receive Date: 20061030
  Receipt Date: 20060815
  Transmission Date: 20070319
  Serious: Yes (Other)
  Sender: FDA-Public Use
  Company Number: DE-ROCHE-459650

PATIENT
  Age: 39 Year
  Sex: Male
  Weight: 68 kg

DRUGS (1)
  1. LARIAM [Suspect]
     Indication: MALARIA PROPHYLAXIS
     Route: 048
     Dates: start: 20050115, end: 20050228

REACTIONS (1)
  - PARKINSONISM [None]
